FAERS Safety Report 9985190 (Version 2)
Quarter: 2014Q2

REPORT INFORMATION
  Report Type: Report from Study
  Country: US (occurrence: US)
  Receive Date: 20140307
  Receipt Date: 20140416
  Transmission Date: 20141212
  Serious: Yes (Other)
  Sender: FDA-Public Use
  Company Number: US-PURDUE-USA-2014-0111749

PATIENT
  Age: 61 Year
  Sex: Male

DRUGS (1)
  1. OXY CR TAB [Suspect]
     Indication: PRODUCT USED FOR UNKNOWN INDICATION
     Dosage: 60 MG, TID
     Route: 048
     Dates: start: 20140212

REACTIONS (3)
  - Joint injury [Unknown]
  - Hypokinesia [Unknown]
  - Pain [Not Recovered/Not Resolved]
